FAERS Safety Report 5577682-4 (Version None)
Quarter: 2007Q4

REPORT INFORMATION
  Report Type: 
  Country: None (occurrence: None)
  Receive Date: 20071231
  Receipt Date: 20071228
  Transmission Date: 20080405
  Serious: Yes (Hospitalization)
  Sender: FDA-Public Use
  Company Number: JP-BRISTOL-MYERS SQUIBB COMPANY-14026553

PATIENT
  Age: 32 Year
  Sex: Female

DRUGS (3)
  1. BLEO [Suspect]
     Indication: OVARIAN CANCER
     Dosage: 30 MG/DAY FOR 2 DAYS.  CUMULATIVE DOSE WAS 120 MG (30 MG X4)
  2. LASTET [Suspect]
     Dosage: 100 MG/M2 PER DAY, FOR DAYS 1-5.
  3. RANDA [Suspect]
     Dosage: 20 MG/M2 PER DAY, FOR DAYS 1-5.

REACTIONS (1)
  - PULMONARY INFARCTION [None]
